FAERS Safety Report 5603094-0 (Version None)
Quarter: 2008Q1

REPORT INFORMATION
  Report Type: 
  Country: None (occurrence: None)
  Receive Date: 20080125
  Receipt Date: 20080115
  Transmission Date: 20080703
  Serious: Yes (Other)
  Sender: FDA-Public Use
  Company Number: GB-PFIZER INC-2008005221

PATIENT
  Age: 62 Year
  Sex: Female

DRUGS (7)
  1. CHANTIX [Suspect]
     Indication: SMOKING CESSATION THERAPY
     Route: 048
     Dates: start: 20070826, end: 20070912
  2. ARCOXIA [Concomitant]
     Route: 048
  3. ESOMEPRAZOLE [Concomitant]
     Route: 048
  4. HYOSCINE HBR HYT [Concomitant]
  5. LACTULOSE [Concomitant]
     Route: 048
  6. LORATADINE [Concomitant]
     Route: 048
  7. PROCHLORPERAZINE [Concomitant]
     Route: 048

REACTIONS (4)
  - ABNORMAL DREAMS [None]
  - DRY MOUTH [None]
  - PALPITATIONS [None]
  - POLLAKIURIA [None]
